FAERS Safety Report 5970008-3 (Version None)
Quarter: 2008Q4

REPORT INFORMATION
  Report Type: 
  Country: None (occurrence: None)
  Receive Date: 20081126
  Receipt Date: 20081117
  Transmission Date: 20090506
  Serious: Yes (Hospitalization)
  Sender: FDA-Public Use
  Company Number: US-PFIZER INC-2008097419

PATIENT
  Sex: Female

DRUGS (17)
  1. TIKOSYN [Suspect]
     Indication: HEART RATE IRREGULAR
  2. ELAVIL [Suspect]
  3. GLIPIZIDE [Concomitant]
  4. KLOR-CON [Concomitant]
  5. WARFARIN SODIUM [Concomitant]
  6. AVAPRO [Concomitant]
  7. CARVEDILOL [Concomitant]
  8. DILTIAZEM HCL [Concomitant]
  9. PRILOSEC [Concomitant]
  10. CO-Q-10 [Concomitant]
  11. CINNAMON [Concomitant]
  12. OMEGA [Concomitant]
  13. MAGNESIUM SULFATE [Concomitant]
  14. VITAMIN D3 [Concomitant]
  15. LUTEIN [Concomitant]
  16. RED YEAST RICE [Concomitant]
  17. CALCIUM CITRATE [Concomitant]

REACTIONS (6)
  - BURSITIS [None]
  - DRUG INEFFECTIVE [None]
  - FIBROMYALGIA [None]
  - INCOHERENT [None]
  - INFECTION [None]
  - WEIGHT INCREASED [None]
